FAERS Safety Report 10017880 (Version 1)
Quarter: 2014Q1

REPORT INFORMATION
  Report Type: Spontaneous
  Country: US (occurrence: US)
  Receive Date: 20140318
  Receipt Date: 20140318
  Transmission Date: 20141002
  Serious: No
  Sender: FDA-Public Use
  Company Number: US-BRISTOL-MYERS SQUIBB COMPANY-18857284

PATIENT
  Age: 66 Year
  Sex: Female
  Weight: 58.96 kg

DRUGS (4)
  1. ERBITUX [Suspect]
     Indication: HEPATIC CANCER
     Dosage: STARTED APPROXIMATELY 5 WEEKS AGO, FIFTH INFUSION THIS FRIDAY .
  2. FUROSEMIDE [Concomitant]
  3. ATENOLOL [Concomitant]
  4. VITAMIN B6 [Concomitant]

REACTIONS (2)
  - Onychoclasis [Unknown]
  - Dry skin [Unknown]
